FAERS Safety Report 6968986-9 (Version None)
Quarter: 2010Q3

REPORT INFORMATION
  Report Type: 
  Country: None (occurrence: None)
  Receive Date: 20100907
  Receipt Date: 20100827
  Transmission Date: 20110219
  Serious: Yes (Other)
  Sender: FDA-Public Use
  Company Number: CHPA2010US13823

PATIENT
  Age: 73 Year
  Sex: Female
  Weight: 63.492 kg

DRUGS (4)
  1. TRANSDERM SCOP [Suspect]
     Indication: VERTIGO
     Dosage: 1 PATCH EVERY 3 DAYS
     Route: 062
     Dates: start: 20100201
  2. TRANSDERM SCOP [Suspect]
     Indication: DIZZINESS
  3. TRANSDERM SCOP [Suspect]
     Indication: DRY MOUTH
  4. TRANSDERM SCOP [Suspect]
     Indication: GAIT DISTURBANCE

REACTIONS (2)
  - DRUG DEPENDENCE [None]
  - OFF LABEL USE [None]
